FAERS Safety Report 7442616-4 (Version None)
Quarter: 2011Q2

REPORT INFORMATION
  Report Type: 
  Country: None (occurrence: None)
  Receive Date: 20110425
  Receipt Date: 20110425
  Transmission Date: 20111010
  Serious: Yes (Hospitalization)
  Sender: FDA-Public Use
  Company Number: None

PATIENT
  Sex: Female
  Weight: 97.8 kg

DRUGS (3)
  1. CARBOPLATIN [Suspect]
     Dosage: 492 MG
  2. NEUPOGEN [Suspect]
     Dosage: 6 MG
  3. PACLITAXEL [Suspect]
     Dosage: 350 MG

REACTIONS (1)
  - NEUTROPHIL COUNT DECREASED [None]
